FAERS Safety Report 15116974 (Version 1)
Quarter: 2018Q3

REPORT INFORMATION
  Report Type: Spontaneous
  Country: US (occurrence: US)
  Receive Date: 20180706
  Receipt Date: 20180706
  Transmission Date: 20181010
  Serious: No
  Sender: FDA-Public Use
  Company Number: US-GLAXOSMITHKLINE-US2018GSK117196

PATIENT
  Sex: Female

DRUGS (1)
  1. ATOVAQUONE ORAL SUSPENSION [Suspect]
     Active Substance: ATOVAQUONE
     Indication: LYME DISEASE
     Dosage: UNK

REACTIONS (3)
  - Drug effective for unapproved indication [Unknown]
  - Off label use [Unknown]
  - Product use in unapproved indication [Unknown]
